FAERS Safety Report 25600133 (Version 1)
Quarter: 2025Q3

REPORT INFORMATION
  Report Type: Spontaneous
  Country: US (occurrence: US)
  Receive Date: 20250724
  Receipt Date: 20250724
  Transmission Date: 20251020
  Serious: Yes (Life-Threatening, Hospitalization)
  Sender: Unknown Manufacturer
  Company Number: US-MLMSERVICE-20250710-PI574084-00217-1

PATIENT
  Age: 78 Year
  Sex: Male

DRUGS (1)
  1. METFORMIN [Suspect]
     Active Substance: METFORMIN HYDROCHLORIDE
     Indication: Product used for unknown indication

REACTIONS (3)
  - Renal failure [Recovered/Resolved]
  - Shock [Recovered/Resolved]
  - Lactic acidosis [Recovered/Resolved]
